FAERS Safety Report 4598204-0 (Version None)
Quarter: 2005Q1

REPORT INFORMATION
  Report Type: 
  Country: None (occurrence: None)
  Receive Date: 20050304
  Receipt Date: 20050222
  Transmission Date: 20050727
  Serious: Yes (Other)
  Sender: FDA-Public Use
  Company Number: JP-BRISTOL-MYERS SQUIBB COMPANY-12878377

PATIENT
  Age: 68 Year
  Sex: Male

DRUGS (8)
  1. GATIFLO TABS 100 MG [Suspect]
     Indication: PHARYNGITIS
     Route: 048
     Dates: start: 20050128, end: 20050129
  2. PELEX [Concomitant]
     Indication: PHARYNGITIS
     Route: 048
     Dates: start: 20050128, end: 20050129
  3. LEBENIN [Concomitant]
     Indication: PHARYNGITIS
     Route: 048
     Dates: start: 20050128, end: 20050129
  4. LACTEC-G [Concomitant]
     Route: 042
     Dates: start: 20050128, end: 20050128
  5. NORVASC [Concomitant]
     Route: 048
     Dates: start: 20050128
  6. DIOVAN [Concomitant]
     Route: 048
     Dates: start: 20050128
  7. ETIZOLAM [Concomitant]
     Route: 048
     Dates: start: 20050128
  8. ADETPHOS [Concomitant]
     Dates: start: 20050128

REACTIONS (7)
  - BLOOD CREATININE INCREASED [None]
  - BLOOD UREA INCREASED [None]
  - BLOOD URIC ACID INCREASED [None]
  - BLOOD URINE PRESENT [None]
  - OEDEMA [None]
  - PLEURAL EFFUSION [None]
  - PROTEIN URINE [None]
